FAERS Safety Report 9142346 (Version 1)
Quarter: 2013Q1

REPORT INFORMATION
  Report Type: Spontaneous
  Country: US (occurrence: US)
  Receive Date: 20130306
  Receipt Date: 20130306
  Transmission Date: 20140127
  Serious: Yes (Death, Hospitalization, Other)
  Sender: FDA-Public Use
  Company Number: US-009507513-1303USA000574

PATIENT
  Age: 87 Year
  Sex: Male

DRUGS (2)
  1. INTEGRILIN [Suspect]
     Indication: PERCUTANEOUS CORONARY INTERVENTION
     Dosage: 180 MICROGRAM PER KILOGRAM, UNK
     Dates: start: 201302, end: 201302
  2. EFFIENT [Concomitant]
     Dosage: UNK
     Dates: start: 201302

REACTIONS (1)
  - Gastrointestinal haemorrhage [Fatal]
